FAERS Safety Report 9110702 (Version 1)
Quarter: 2013Q1

REPORT INFORMATION
  Report Type: Spontaneous
  Country: US (occurrence: US)
  Receive Date: 20130219
  Receipt Date: 20130219
  Transmission Date: 20140127
  Serious: Yes (Other)
  Sender: FDA-Public Use
  Company Number: US-BRISTOL-MYERS SQUIBB COMPANY-16713133

PATIENT
  Age: 60 Year
  Sex: Female

DRUGS (6)
  1. ABATACEPT SUBQ INJECTION 125MG/ML [Suspect]
     Dosage: ALSO IV AFTER SUBCUTANEOUS LAST INF 3 WEEKS AGO,INTRP + RESTR
     Route: 058
  2. PLAQUENIL [Concomitant]
  3. METHOTREXATE [Concomitant]
     Route: 048
  4. SYNTHROID [Concomitant]
  5. CRESTOR [Concomitant]
  6. DETROL [Concomitant]

REACTIONS (1)
  - Hypersensitivity [Recovered/Resolved]
